FAERS Safety Report 6336906-6 (Version None)
Quarter: 2009Q3

REPORT INFORMATION
  Report Type: 
  Country: None (occurrence: None)
  Receive Date: 20090901
  Receipt Date: 20090824
  Transmission Date: 20100115
  Serious: Yes (Life-Threatening, Hospitalization)
  Sender: FDA-Public Use
  Company Number: PHHY2009DE35863

PATIENT
  Sex: Female
  Weight: 55 kg

DRUGS (1)
  1. FORMOTOP NOVOLIZER [Suspect]
     Dosage: 12 UG, UNK
     Dates: start: 20081101

REACTIONS (3)
  - ANGINA PECTORIS [None]
  - HYPERTENSION [None]
  - PANIC ATTACK [None]
